FAERS Safety Report 4698982-6 (Version None)
Quarter: 2005Q2

REPORT INFORMATION
  Report Type: 
  Country: None (occurrence: None)
  Receive Date: 20050622
  Receipt Date: 20050622
  Transmission Date: 20051028
  Serious: Yes (Hospitalization)
  Sender: FDA-Public Use
  Company Number: None

PATIENT
  Age: 60 Year
  Sex: Male
  Weight: 102.0593 kg

DRUGS (1)
  1. LORATADINE [Suspect]
     Indication: UPPER RESPIRATORY TRACT INFECTION
     Dosage: 10MG   ONCE DAILY   ORAL
     Route: 048
     Dates: start: 20050615, end: 20050618

REACTIONS (2)
  - PAIN [None]
  - RASH PRURITIC [None]
